FAERS Safety Report 22097890 (Version 1)
Quarter: 2023Q1

REPORT INFORMATION
  Report Type: Spontaneous
  Country: IR (occurrence: IR)
  Receive Date: 20230315
  Receipt Date: 20230315
  Transmission Date: 20230417
  Serious: Yes (Death, Hospitalization, Other)
  Sender: FDA-Public Use
  Company Number: None

PATIENT
  Age: 51 Year
  Sex: Female

DRUGS (5)
  1. DICLOFENAC [Suspect]
     Active Substance: DICLOFENAC
     Indication: Pain
     Route: 054
  2. CEPHALEXIN [Concomitant]
     Active Substance: CEPHALEXIN
  3. HEPARIN [Concomitant]
     Active Substance: HEPARIN SODIUM
  4. HEPARIN [Concomitant]
     Active Substance: HEPARIN SODIUM
  5. MUCILLIUM [Concomitant]

REACTIONS (4)
  - Acute kidney injury [Fatal]
  - Cardiac arrest [None]
  - Multiple organ dysfunction syndrome [Fatal]
  - Metabolic acidosis [Fatal]
